FAERS Safety Report 18230187 (Version 11)
Quarter: 2025Q1

REPORT INFORMATION
  Report Type: Report from Study
  Country: US (occurrence: US)
  Receive Date: 20200904
  Receipt Date: 20250205
  Transmission Date: 20250408
  Serious: No
  Sender: DECIPHERA PHARMACEUTICALS
  Company Number: US-DECIPHERA PHARMACEUTICALS LLC-2020-US-000270

PATIENT
  Age: 73 Year
  Sex: Female

DRUGS (5)
  1. QINLOCK [Suspect]
     Active Substance: RIPRETINIB
     Indication: Gastrointestinal stromal tumour
     Dosage: 150 MILLIGRAM, QD
     Route: 048
     Dates: start: 20200628
  2. QINLOCK [Suspect]
     Active Substance: RIPRETINIB
     Dosage: 150 MILLIGRAM, QD
     Route: 048
  3. QINLOCK [Suspect]
     Active Substance: RIPRETINIB
     Dosage: 150 MILLIGRAM, QD
     Route: 048
  4. QINLOCK [Suspect]
     Active Substance: RIPRETINIB
     Dosage: 150 MILLIGRAM, BID
     Route: 048
  5. QINLOCK [Suspect]
     Active Substance: RIPRETINIB
     Dosage: 150 MILLIGRAM, QD
     Route: 048
     Dates: end: 20250111

REACTIONS (24)
  - Muscle fatigue [Unknown]
  - Rash erythematous [Unknown]
  - Defaecation urgency [Unknown]
  - Gastrointestinal pain [Unknown]
  - Gastrointestinal hypomotility [Unknown]
  - Hair colour changes [Unknown]
  - Rash papular [Unknown]
  - Product after taste [Unknown]
  - Mobility decreased [Unknown]
  - Stress [Unknown]
  - Migraine [Unknown]
  - Somnolence [Unknown]
  - Neoplasm progression [Unknown]
  - Constipation [Unknown]
  - Fatigue [Unknown]
  - Alopecia [Not Recovered/Not Resolved]
  - Rash [Unknown]
  - Product coating issue [Unknown]
  - Product solubility abnormal [Unknown]
  - Product shape issue [Unknown]
  - Product use complaint [Unknown]
  - Product size issue [Unknown]
  - Extra dose administered [Unknown]
  - Product dose omission issue [Unknown]

NARRATIVE: CASE EVENT DATE: 20250111
